FAERS Safety Report 23805417 (Version 3)
Quarter: 2025Q1

REPORT INFORMATION
  Report Type: Report from Study
  Country: CA (occurrence: CA)
  Receive Date: 20240502
  Receipt Date: 20250311
  Transmission Date: 20250409
  Serious: Yes (Hospitalization, Other)
  Sender: CELLTRION
  Company Number: CA-CELLTRION INC.-2024CA009599

PATIENT

DRUGS (2)
  1. ADALIMUMAB-AATY [Suspect]
     Active Substance: ADALIMUMAB-AATY
     Indication: Colitis ulcerative
     Dosage: 1 PEN (40MG) SUBCUTANEOUSLY EVERY WEEK AS DIRECTED
     Route: 058
     Dates: start: 20230103
  2. ADALIMUMAB-AATY [Suspect]
     Active Substance: ADALIMUMAB-AATY
     Dosage: MAINTENANCE - 40 MG EVERY 7 DAYS. STOP DATE: 2025
     Route: 058
     Dates: start: 20240111

REACTIONS (2)
  - Gastrointestinal disorder [Unknown]
  - Haematochezia [Unknown]
